FAERS Safety Report 7087288-6 (Version None)
Quarter: 2010Q4

REPORT INFORMATION
  Report Type: 
  Country: None (occurrence: None)
  Receive Date: 20101107
  Receipt Date: 20091231
  Transmission Date: 20110411
  Serious: Yes (Death)
  Sender: FDA-Public Use
  Company Number: PHHY2009US66878

PATIENT
  Sex: Male

DRUGS (2)
  1. EXJADE [Suspect]
     Dosage: 1500  (UNITS UNKNOWN) ONCE DAILY
     Route: 048
  2. ANTIBIOTICS [Concomitant]

REACTIONS (2)
  - DEATH [None]
  - MALAISE [None]
